FAERS Safety Report 13822516 (Version 1)
Quarter: 2017Q3

REPORT INFORMATION
  Report Type: Spontaneous
  Country: DE (occurrence: DE)
  Receive Date: 20170801
  Receipt Date: 20170801
  Transmission Date: 20171127
  Serious: Yes (Other)
  Sender: FDA-Public Use
  Company Number: DE-009507513-1707DEU003400

PATIENT
  Sex: Female

DRUGS (2)
  1. IMPLANON [Suspect]
     Active Substance: ETONOGESTREL
     Dosage: 1 DF, UNK, LEFT ARM
     Route: 059
     Dates: start: 2014, end: 2014
  2. IMPLANON [Suspect]
     Active Substance: ETONOGESTREL
     Dosage: 1 DF, UNK, RIGHT ARM
     Route: 059
     Dates: start: 2010, end: 20170719

REACTIONS (13)
  - Hypersensitivity [Unknown]
  - Device difficult to use [Recovered/Resolved]
  - Radiculopathy [Unknown]
  - Incorrect drug administration duration [Recovered/Resolved]
  - Implant site swelling [Unknown]
  - Limb discomfort [Unknown]
  - Device deployment issue [Recovered/Resolved]
  - Complication associated with device [Recovered/Resolved]
  - Surgery [Unknown]
  - Dermatitis allergic [Unknown]
  - Paraesthesia [Unknown]
  - Overdose [Recovered/Resolved]
  - Complication associated with device [Recovered/Resolved]

NARRATIVE: CASE EVENT DATE: 2010
